FAERS Safety Report 21230329 (Version 2)
Quarter: 2022Q3

REPORT INFORMATION
  Report Type: Report from Study
  Country: KR (occurrence: KR)
  Receive Date: 20220818
  Receipt Date: 20220920
  Transmission Date: 20221027
  Serious: Yes (Death, Hospitalization)
  Sender: FDA-Public Use
  Company Number: KR-GILEAD-2022-0593293

PATIENT
  Sex: Female
  Weight: 44.9 kg

DRUGS (6)
  1. SACITUZUMAB GOVITECAN [Suspect]
     Active Substance: SACITUZUMAB GOVITECAN
     Indication: Transitional cell carcinoma
     Dosage: 10 MG/KG, D1 AND 8 OF EVERY 21 DAYS
     Route: 042
     Dates: start: 20220720, end: 20220803
  2. DERMATOP [Concomitant]
     Active Substance: PREDNICARBATE
     Indication: Pruritus
     Dosage: UNK
     Dates: start: 20220628
  3. MEGACE [Concomitant]
     Active Substance: MEGESTROL ACETATE
  4. GASTOREN [Concomitant]
     Dosage: UNK
     Dates: start: 20220720
  5. MACPERAN [METOCLOPRAMIDE] [Concomitant]
     Dosage: UNK
     Dates: start: 20220720
  6. CELEBREX [Concomitant]
     Active Substance: CELECOXIB
     Indication: Pain
     Dosage: UNK
     Dates: start: 20220701

REACTIONS (3)
  - Sepsis [Fatal]
  - Blood creatinine increased [Not Recovered/Not Resolved]
  - Neutropenia [Not Recovered/Not Resolved]

NARRATIVE: CASE EVENT DATE: 20220810
